FAERS Safety Report 6646067-1 (Version None)
Quarter: 2010Q1

REPORT INFORMATION
  Report Type: 
  Country: None (occurrence: None)
  Receive Date: 20100318
  Receipt Date: 20100309
  Transmission Date: 20100710
  Serious: Yes (Other)
  Sender: FDA-Public Use
  Company Number: 1000010863

PATIENT
  Age: 34 Year
  Sex: Female

DRUGS (6)
  1. LEXAPRO [Suspect]
     Dosage: (10 MG), ORAL; (30 MG), ORAL
     Route: 048
  2. LAMICTAL [Suspect]
     Indication: CONVULSION
     Dosage: (1 IN 1 D), ORAL; (100 MG), ORAL; (200 MG), ORAL; (475 MG), ORAL; (500 MG), ORAL
     Route: 048
     Dates: end: 20040101
  3. LAMICTAL [Suspect]
     Indication: CONVULSION
     Dosage: (1 IN 1 D), ORAL; (100 MG), ORAL; (200 MG), ORAL; (475 MG), ORAL; (500 MG), ORAL
     Route: 048
     Dates: end: 20091130
  4. LAMICTAL [Suspect]
     Indication: CONVULSION
     Dosage: (1 IN 1 D), ORAL; (100 MG), ORAL; (200 MG), ORAL; (475 MG), ORAL; (500 MG), ORAL
     Route: 048
     Dates: start: 20010101
  5. LAMICTAL [Suspect]
     Indication: CONVULSION
     Dosage: (1 IN 1 D), ORAL; (100 MG), ORAL; (200 MG), ORAL; (475 MG), ORAL; (500 MG), ORAL
     Route: 048
     Dates: start: 20091201
  6. KEPPRA [Suspect]
     Indication: CONVULSION
     Dosage: ORAL; (3000 MG), ORAL
     Route: 048
     Dates: start: 20040101

REACTIONS (8)
  - ANXIETY [None]
  - CONVULSION [None]
  - FALL [None]
  - NAUSEA [None]
  - OVERDOSE [None]
  - PETIT MAL EPILEPSY [None]
  - SUICIDAL IDEATION [None]
  - VISUAL IMPAIRMENT [None]
